FAERS Safety Report 4432840-7 (Version None)
Quarter: 2004Q3

REPORT INFORMATION
  Report Type: 
  Country: None (occurrence: None)
  Receive Date: 20040823
  Receipt Date: 20040810
  Transmission Date: 20050211
  Serious: Yes (Death, Hospitalization)
  Sender: FDA-Public Use
  Company Number: 2004048385

PATIENT
  Age: 55 Year
  Sex: Female

DRUGS (7)
  1. AMLODIPINE [Suspect]
     Indication: ILL-DEFINED DISORDER
     Dosage: ORAL
  2. NIZATIDINE [Suspect]
     Indication: DUODENAL ULCER HAEMORRHAGE
     Dosage: 150 MG, ORAL
     Route: 048
     Dates: start: 20010101
  3. INSULIN [Concomitant]
  4. PROPYLTHIOURACIL [Concomitant]
  5. VOGLIBOSE (VOGLIBOSE) [Concomitant]
  6. MECOBALAMIN (MECOBALAMIN) [Concomitant]
  7. ETIZOLAM (ETIZOLAM) [Concomitant]

REACTIONS (10)
  - APLASTIC ANAEMIA [None]
  - BODY TEMPERATURE DECREASED [None]
  - CRACKLES LUNG [None]
  - DIARRHOEA [None]
  - EMBOLISM [None]
  - HYPOREFLEXIA [None]
  - MUCORMYCOSIS [None]
  - PALLOR [None]
  - PNEUMONIA [None]
  - SEPTIC SHOCK [None]
